FAERS Safety Report 15226536 (Version 1)
Quarter: 2018Q3

REPORT INFORMATION
  Report Type: Spontaneous
  Country: US (occurrence: US)
  Receive Date: 20180706
  Receipt Date: 20180706
  Transmission Date: 20181010
  Serious: No
  Sender: FDA-Public Use
  Company Number: None

PATIENT
  Sex: Female
  Weight: 66.68 kg

DRUGS (3)
  1. TYKERB [Suspect]
     Active Substance: LAPATINIB DITOSYLATE
     Indication: BREAST CANCER
     Route: 048
     Dates: start: 201806
  2. TYKERB [Suspect]
     Active Substance: LAPATINIB DITOSYLATE
     Indication: BRAIN NEOPLASM MALIGNANT
  3. TYKERB [Suspect]
     Active Substance: LAPATINIB DITOSYLATE
     Indication: BRAIN NEOPLASM MALIGNANT

REACTIONS (6)
  - Dry skin [None]
  - Nausea [None]
  - Rash [None]
  - Stomatitis [None]
  - Vomiting [None]
  - Abdominal discomfort [None]
